FAERS Safety Report 14438516 (Version 2)
Quarter: 2018Q1

REPORT INFORMATION
  Report Type: Report from Study
  Country: US (occurrence: US)
  Receive Date: 20180125
  Receipt Date: 20180227
  Transmission Date: 20180509
  Serious: Yes (Death, Hospitalization, Other)
  Sender: FDA-Public Use
  Company Number: US-JNJFOC-20170909955

PATIENT
  Age: 93 Year
  Sex: Male

DRUGS (4)
  1. IMBRUVICA [Suspect]
     Active Substance: IBRUTINIB
     Indication: CHRONIC LYMPHOCYTIC LEUKAEMIA
     Route: 048
     Dates: start: 20160901
  2. IMBRUVICA [Suspect]
     Active Substance: IBRUTINIB
     Indication: CHRONIC LYMPHOCYTIC LEUKAEMIA
     Route: 048
     Dates: start: 20161130
  3. ELIQUIS [Concomitant]
     Active Substance: APIXABAN
  4. IMBRUVICA [Suspect]
     Active Substance: IBRUTINIB
     Indication: CHRONIC LYMPHOCYTIC LEUKAEMIA
     Route: 048
     Dates: start: 20160908

REACTIONS (14)
  - White blood cell count abnormal [Recovering/Resolving]
  - Skin ulcer [Unknown]
  - Pneumonia [Fatal]
  - Lip disorder [Recovered/Resolved]
  - Pleural effusion [Not Recovered/Not Resolved]
  - Gout [Recovered/Resolved]
  - Blood creatinine abnormal [Not Recovered/Not Resolved]
  - Glossodynia [Unknown]
  - Tongue injury [Unknown]
  - Muscle strain [Unknown]
  - Mastication disorder [Not Recovered/Not Resolved]
  - Tongue discolouration [Unknown]
  - Ligament sprain [Unknown]
  - Oropharyngeal pain [Recovered/Resolved]

NARRATIVE: CASE EVENT DATE: 2016
